FAERS Safety Report 7282694-9 (Version None)
Quarter: 2011Q1

REPORT INFORMATION
  Report Type: 
  Country: None (occurrence: None)
  Receive Date: 20110209
  Receipt Date: 20101215
  Transmission Date: 20110831
  Serious: No
  Sender: FDA-Public Use
  Company Number: US-TYCO HEALTHCARE/MALLINCKRODT-T201002459

PATIENT
  Sex: Female

DRUGS (1)
  1. PENNSAID [Suspect]
     Dosage: UNK, QID
     Route: 048
     Dates: start: 20101201

REACTIONS (4)
  - CONSTIPATION [None]
  - MALAISE [None]
  - WRONG TECHNIQUE IN DRUG USAGE PROCESS [None]
  - INCORRECT ROUTE OF DRUG ADMINISTRATION [None]
